FAERS Safety Report 5692035-6 (Version None)
Quarter: 2008Q2

REPORT INFORMATION
  Report Type: 
  Country: None (occurrence: None)
  Receive Date: 20080402
  Receipt Date: 20080331
  Transmission Date: 20081010
  Serious: Yes (Life-Threatening, Hospitalization)
  Sender: FDA-Public Use
  Company Number: GB-MERCK-0804GBR00003

PATIENT
  Age: 74 Year
  Sex: Male
  Weight: 83 kg

DRUGS (6)
  1. ZOCOR [Suspect]
     Indication: CARDIOVASCULAR EVENT PROPHYLAXIS
     Route: 048
     Dates: start: 20071029
  2. ATENOLOL [Concomitant]
     Indication: HYPERTENSION
     Route: 048
     Dates: start: 19990223
  3. ATORVASTATIN [Concomitant]
     Route: 065
     Dates: start: 20040101
  4. BENDROFLUMETHIAZIDE [Concomitant]
     Indication: HYPERTENSION
     Route: 048
  5. CHLORMADINONE ACETATE [Concomitant]
     Route: 048
     Dates: start: 20071006, end: 20071206
  6. GOSERELIN [Concomitant]
     Indication: PROSTATE CANCER
     Route: 058
     Dates: start: 20071030, end: 20080201

REACTIONS (2)
  - GLOMERULAR FILTRATION RATE DECREASED [None]
  - RHABDOMYOLYSIS [None]
